FAERS Safety Report 18473844 (Version 1)
Quarter: 2020Q4

REPORT INFORMATION
  Report Type: Report from Study
  Country: US (occurrence: US)
  Receive Date: 20201106
  Receipt Date: 20201106
  Transmission Date: 20210114
  Serious: Yes (Hospitalization)
  Sender: FDA-Public Use
  Company Number: US-JNJFOC-20201021620

PATIENT
  Sex: Male

DRUGS (12)
  1. CARBIDOPA-LEVODOPA-B [Concomitant]
     Active Substance: CARBIDOPA\LEVODOPA
     Dosage: 10/100 MG
  2. MIDODRINE HYDROCHLORIDE. [Concomitant]
     Active Substance: MIDODRINE HYDROCHLORIDE
  3. STELARA [Suspect]
     Active Substance: USTEKINUMAB
  4. LIALDA [Concomitant]
     Active Substance: MESALAMINE
  5. STELARA [Suspect]
     Active Substance: USTEKINUMAB
     Indication: CROHN^S DISEASE
     Route: 058
     Dates: start: 20200827
  6. FAMOTIDINE. [Concomitant]
     Active Substance: FAMOTIDINE
  7. MELATONIN [Concomitant]
     Active Substance: MELATONIN
  8. MIRTAZAPINE. [Concomitant]
     Active Substance: MIRTAZAPINE
  9. AMANTADINE HYDROCHLORIDE. [Concomitant]
     Active Substance: AMANTADINE HYDROCHLORIDE
  10. IRON [Concomitant]
     Active Substance: IRON
  11. NEUPRO [Concomitant]
     Active Substance: ROTIGOTINE
  12. GABAPENTIN. [Concomitant]
     Active Substance: GABAPENTIN

REACTIONS (4)
  - Constipation [Not Recovered/Not Resolved]
  - Depression [Not Recovered/Not Resolved]
  - Haemoglobin decreased [Not Recovered/Not Resolved]
  - Haemorrhoidal haemorrhage [Not Recovered/Not Resolved]
